FAERS Safety Report 9629805 (Version 3)
Quarter: 2014Q1

REPORT INFORMATION
  Report Type: Spontaneous
  Country: FR (occurrence: FR)
  Receive Date: 20131017
  Receipt Date: 20140219
  Transmission Date: 20141002
  Serious: Yes (Other)
  Sender: FDA-Public Use
  Company Number: FR-ABBVIE-13P-056-1156164-00

PATIENT
  Age: 50 Year
  Sex: Female

DRUGS (2)
  1. HUMIRA [Suspect]
     Indication: PSORIATIC ARTHROPATHY
     Dates: start: 2011
  2. METHOTREXATE [Suspect]
     Indication: PSORIATIC ARTHROPATHY
     Dosage: BETWEEN 20 MG AND 7.5 MG PER WEEK
     Dates: start: 200703, end: 201312

REACTIONS (2)
  - Vulvar dysplasia [Not Recovered/Not Resolved]
  - Neoplasm malignant [Not Recovered/Not Resolved]
